FAERS Safety Report 17846640 (Version 1)
Quarter: 2020Q2

REPORT INFORMATION
  Report Type: Spontaneous
  Country: GB (occurrence: GB)
  Receive Date: 20200601
  Receipt Date: 20200601
  Transmission Date: 20200714
  Serious: Yes (Other)
  Sender: FDA-Public Use
  Company Number: GB-MYLANLABS-2020M1052574

PATIENT
  Age: 41 Year
  Sex: Male

DRUGS (2)
  1. NAPROXEN. [Suspect]
     Active Substance: NAPROXEN
     Indication: PRODUCT USED FOR UNKNOWN INDICATION
     Dosage: 500 MILLIGRAM
     Route: 065
     Dates: start: 20200512
  2. COLCHICINE. [Concomitant]
     Active Substance: COLCHICINE
     Dosage: 4 DOSAGE FORM, QD
     Dates: start: 20200512

REACTIONS (4)
  - Flushing [Recovered/Resolved]
  - Angioedema [Recovered/Resolved]
  - Urticaria [Unknown]
  - Swelling face [Recovered/Resolved]

NARRATIVE: CASE EVENT DATE: 20200512
